FAERS Safety Report 6003181-1 (Version None)
Quarter: 2008Q4

REPORT INFORMATION
  Report Type: 
  Country: None (occurrence: None)
  Receive Date: 20081216
  Receipt Date: 20081124
  Transmission Date: 20090506
  Serious: No
  Sender: FDA-Public Use
  Company Number: US-B.I. PHARMACEUTICALS,INC./RIDGEFIELD-2008-BP-17766BP

PATIENT
  Sex: Female

DRUGS (7)
  1. ATROVENT HFA [Suspect]
     Indication: EMPHYSEMA
     Dosage: 136MCG
     Route: 055
     Dates: start: 20081107, end: 20081111
  2. ATROVENT HFA [Suspect]
     Dosage: 68MCG
     Route: 055
     Dates: start: 20081111
  3. UNKNOWN BLOOD PRESSURE MED [Concomitant]
     Indication: HYPERTENSION
     Dates: start: 19980101
  4. PREDNISONE TAB [Concomitant]
     Indication: ARTHRITIS
  5. SULINDAC [Concomitant]
     Indication: ARTHRITIS
  6. TRIAMTERENE [Concomitant]
     Indication: HYPERTENSION
     Dates: start: 19900101
  7. LEVOTHYROXINE SODIUM [Concomitant]
     Indication: HYPOTHYROIDISM
     Dates: start: 20030101

REACTIONS (4)
  - ABDOMINAL PAIN UPPER [None]
  - DIZZINESS [None]
  - GASTROINTESTINAL DISORDER [None]
  - NAUSEA [None]
